FAERS Safety Report 7652265-0 (Version None)
Quarter: 2011Q3

REPORT INFORMATION
  Report Type: 
  Country: None (occurrence: None)
  Receive Date: 20110728
  Receipt Date: 20110718
  Transmission Date: 20111222
  Serious: Yes (Other)
  Sender: FDA-Public Use
  Company Number: 0095095020110718001

PATIENT
  Age: 56 Year
  Sex: Female

DRUGS (6)
  1. PLAVIX [Concomitant]
  2. ZOLPIMIST [Suspect]
     Indication: INSOMNIA
     Dosage: ORAL SPRAY
     Route: 048
     Dates: start: 20110708
  3. COREG [Concomitant]
  4. ZOCOR [Concomitant]
  5. VIIBRYD [Suspect]
     Indication: DEPRESSION
     Dosage: 10 MG, QD, ORAL
     Route: 048
     Dates: start: 20110711
  6. VIIBRYD [Suspect]
     Indication: POST-TRAUMATIC STRESS DISORDER
     Dosage: 10 MG, QD, ORAL
     Route: 048
     Dates: start: 20110711

REACTIONS (7)
  - HYPERHIDROSIS [None]
  - FEAR [None]
  - VOMITING [None]
  - NIGHTMARE [None]
  - FEELING ABNORMAL [None]
  - PALPITATIONS [None]
  - DIZZINESS [None]
